FAERS Safety Report 19043100 (Version 1)
Quarter: 2021Q1

REPORT INFORMATION
  Report Type: Spontaneous
  Country: US (occurrence: US)
  Receive Date: 20210323
  Receipt Date: 20210323
  Transmission Date: 20210420
  Serious: No
  Sender: FDA-Public Use
  Company Number: US-ALLERGAN-2107417US

PATIENT
  Age: 72 Year
  Sex: Female

DRUGS (1)
  1. DURYSTA [Suspect]
     Active Substance: BIMATOPROST
     Indication: GLAUCOMA
     Dosage: 10 ?G, SINGLE
     Route: 031
     Dates: start: 20210111, end: 20210111

REACTIONS (4)
  - Neck pain [Not Recovered/Not Resolved]
  - Arthralgia [Not Recovered/Not Resolved]
  - Therapeutic product effect incomplete [Unknown]
  - Gait disturbance [Not Recovered/Not Resolved]

NARRATIVE: CASE EVENT DATE: 20210207
